FAERS Safety Report 14433250 (Version 1)
Quarter: 2018Q1

REPORT INFORMATION
  Report Type: Spontaneous
  Country: US (occurrence: US)
  Receive Date: 20180124
  Receipt Date: 20180124
  Transmission Date: 20180509
  Serious: Yes (Hospitalization, Other)
  Sender: FDA-Public Use
  Company Number: US-PIRAMAL ENTERPRISES LTD-T201204163

PATIENT

DRUGS (1)
  1. GABLOFEN [Suspect]
     Active Substance: BACLOFEN
     Dosage: 1305 ?G, QD
     Route: 037

REACTIONS (6)
  - Altered state of consciousness [Unknown]
  - Muscle spasticity [Unknown]
  - Device kink [Recovered/Resolved]
  - Overdose [Unknown]
  - Mental status changes [Unknown]
  - Withdrawal syndrome [Unknown]

NARRATIVE: CASE EVENT DATE: 2012
